FAERS Safety Report 10754645 (Version 2)
Quarter: 2015Q4

REPORT INFORMATION
  Report Type: Report from Study
  Country: US (occurrence: US)
  Receive Date: 20150202
  Receipt Date: 20151120
  Transmission Date: 20160304
  Serious: Yes (Other)
  Sender: FDA-Public Use
  Company Number: US-ASTRAZENECA-2015SE07609

PATIENT
  Age: 905 Month
  Sex: Male
  Weight: 113.4 kg

DRUGS (4)
  1. COUMADIN [Suspect]
     Active Substance: WARFARIN SODIUM
     Indication: CARDIAC VALVE VEGETATION
     Route: 065
     Dates: start: 2010
  2. ASPIRIN. [Suspect]
     Active Substance: ASPIRIN
     Route: 048
     Dates: end: 20150120
  3. BRILINTA [Suspect]
     Active Substance: TICAGRELOR
     Indication: ACUTE CORONARY SYNDROME
     Route: 048
     Dates: start: 20150114
  4. COUMADIN [Suspect]
     Active Substance: WARFARIN SODIUM
     Indication: CARDIAC VALVE VEGETATION
     Dosage: ONCE PER WEEK HE ADDS AN ADDITIONAL HALF DOSE TO THE 7.5, THAT DAY TAKING 7.5 PLUS 3.75 MG.
     Route: 065
     Dates: start: 2010

REACTIONS (4)
  - Epistaxis [Not Recovered/Not Resolved]
  - Proctalgia [Unknown]
  - Rectal haemorrhage [Not Recovered/Not Resolved]
  - Feeling abnormal [Unknown]

NARRATIVE: CASE EVENT DATE: 201501
